FAERS Safety Report 7936351-3 (Version None)
Quarter: 2011Q4

REPORT INFORMATION
  Report Type: 
  Country: None (occurrence: None)
  Receive Date: 20111121
  Receipt Date: 20111114
  Transmission Date: 20120403
  Serious: Yes (Hospitalization)
  Sender: FDA-Public Use
  Company Number: DL2011-0880

PATIENT
  Age: 33 Year
  Sex: Female

DRUGS (3)
  1. MISOPROSTOL [Suspect]
     Dosage: 800 MCG, BUCCAL 10/26/2011 OR 10/27/2011
     Route: 002
  2. DOXYCYCLINE [Concomitant]
  3. MIFEPRISTONE (MIFEPREX) [Suspect]
     Indication: ABORTION INDUCED
     Dosage: 200 MG, ORAL
     Route: 048
     Dates: start: 20111024

REACTIONS (4)
  - INFECTION [None]
  - PYREXIA [None]
  - VOMITING [None]
  - NAUSEA [None]
